FAERS Safety Report 25498545 (Version 3)
Quarter: 2025Q3

REPORT INFORMATION
  Report Type: Report from Study
  Country: KR (occurrence: KR)
  Receive Date: 20250701
  Receipt Date: 20250916
  Transmission Date: 20251020
  Serious: Yes (Other)
  Sender: TAKEDA
  Company Number: KR-TAKEDA-2025TUS059070

PATIENT
  Age: 39 Year
  Sex: Female
  Weight: 48 kg

DRUGS (17)
  1. VEDOLIZUMAB [Suspect]
     Active Substance: VEDOLIZUMAB
     Indication: Colitis ulcerative
     Dates: start: 20240710, end: 20241209
  2. VEDOLIZUMAB [Suspect]
     Active Substance: VEDOLIZUMAB
  3. VEDOLIZUMAB [Concomitant]
     Active Substance: VEDOLIZUMAB
     Indication: Colitis ulcerative
     Dates: start: 20241223, end: 20250120
  4. ASACOL [Concomitant]
     Active Substance: MESALAMINE
     Indication: Colitis ulcerative
     Dosage: 1600 MILLIGRAM, BID
     Dates: start: 20220727
  5. AZATHIOPRINE [Concomitant]
     Active Substance: AZATHIOPRINE
     Indication: Colitis ulcerative
     Dosage: 25 MILLIGRAM, QD
     Dates: start: 20240103, end: 20241013
  6. AZATHIOPRINE [Concomitant]
     Active Substance: AZATHIOPRINE
     Dosage: 50 MILLIGRAM, QD
     Dates: start: 20221005, end: 20241013
  7. AZATHIOPRINE [Concomitant]
     Active Substance: AZATHIOPRINE
     Dosage: 100 MILLIGRAM, QD
     Dates: start: 20241014, end: 20250216
  8. Solondo [Concomitant]
     Indication: Abdominal pain
     Dosage: 20 MILLIGRAM, QD
     Dates: start: 20240925, end: 20241008
  9. Solondo [Concomitant]
     Dosage: 15 MILLIGRAM, QD
     Dates: start: 20241009, end: 20241020
  10. Solondo [Concomitant]
     Dosage: 10 MILLIGRAM, QD
     Dates: start: 20241021, end: 20241103
  11. Solondo [Concomitant]
     Dosage: 5 MILLIGRAM, QD
     Dates: start: 20241104, end: 20241117
  12. Solondo [Concomitant]
     Dosage: 15 MILLIGRAM, QD
     Dates: start: 20241209, end: 20241222
  13. Solondo [Concomitant]
     Dosage: 10 MILLIGRAM, QD
     Dates: start: 20241223, end: 20250105
  14. Solondo [Concomitant]
     Dosage: 5 MILLIGRAM, QD
     Dates: start: 20250106, end: 20250119
  15. Solondo [Concomitant]
     Dosage: 20 MILLIGRAM, QD
     Dates: start: 20250120, end: 20250202
  16. Solondo [Concomitant]
     Dosage: 15 MILLIGRAM, QD
     Dates: start: 20250203, end: 20250216
  17. Dicamax d [Concomitant]
     Indication: Vitamin D deficiency
     Dosage: 250 MILLIGRAM, QD
     Dates: start: 20240819

REACTIONS (1)
  - Haematochezia [Recovered/Resolved]

NARRATIVE: CASE EVENT DATE: 20241209
